FAERS Safety Report 13927930 (Version 1)
Quarter: 2017Q3

REPORT INFORMATION
  Report Type: Spontaneous
  Country: BR (occurrence: BR)
  Receive Date: 20170901
  Receipt Date: 20170901
  Transmission Date: 20171127
  Serious: Yes (Death, Hospitalization)
  Sender: FDA-Public Use
  Company Number: BR-ROCHE-1984992

PATIENT
  Sex: Male
  Weight: 59 kg

DRUGS (6)
  1. TECTA [Concomitant]
     Active Substance: PANTOPRAZOLE MAGNESIUM
  2. XELODA [Suspect]
     Active Substance: CAPECITABINE
     Indication: GASTRIC CANCER
     Dosage: 4 TABLETS EVERY 12 HOURS
     Route: 048
     Dates: start: 20170608
  3. TEVAOXALI [Suspect]
     Active Substance: OXALIPLATIN
     Indication: GASTRIC CANCER
     Route: 042
     Dates: start: 20170608
  4. LOPERAMIDE [Concomitant]
     Active Substance: LOPERAMIDE
     Route: 065
  5. NAUSEDRON [Concomitant]
     Active Substance: ONDANSETRON HYDROCHLORIDE
  6. FLORATIL [Concomitant]

REACTIONS (12)
  - Metabolic acidosis [Unknown]
  - Septic shock [Fatal]
  - Hypotension [Unknown]
  - Colitis [Unknown]
  - Diarrhoea [Unknown]
  - Neutropenia [Unknown]
  - Abdominal distension [Unknown]
  - Odynophagia [Unknown]
  - Nausea [Unknown]
  - Ill-defined disorder [Unknown]
  - Vomiting [Unknown]
  - Hypokalaemia [Unknown]
